FAERS Safety Report 7867934-7 (Version None)
Quarter: 2011Q4

REPORT INFORMATION
  Report Type: 
  Country: None (occurrence: None)
  Receive Date: 20111028
  Receipt Date: 20111021
  Transmission Date: 20120403
  Serious: Yes (Death, Hospitalization, Other)
  Sender: FDA-Public Use
  Company Number: PHHY2011NO94263

PATIENT
  Age: 35 Year
  Sex: Male

DRUGS (4)
  1. EPIRUBICIN [Concomitant]
     Dosage: 50 MG, UNK
  2. OXALIPLATIN [Concomitant]
     Dosage: 130 MG, UNK
  3. XELODA [Concomitant]
     Dosage: 625 MG, BID
  4. ZOLEDRONIC [Suspect]
     Indication: BONE LESION

REACTIONS (13)
  - ACUTE RESPIRATORY DISTRESS SYNDROME [None]
  - DECREASED APPETITE [None]
  - PNEUMONIA [None]
  - PARESIS CRANIAL NERVE [None]
  - NEOPLASM PROGRESSION [None]
  - NEOPLASM MALIGNANT [None]
  - WEIGHT DECREASED [None]
  - DEATH [None]
  - CRANIAL NERVE PARALYSIS [None]
  - METASTASES TO MENINGES [None]
  - ABDOMINAL PAIN [None]
  - NEUROLOGICAL SYMPTOM [None]
  - GENERAL PHYSICAL HEALTH DETERIORATION [None]
